FAERS Safety Report 10796657 (Version 2)
Quarter: 2015Q1

REPORT INFORMATION
  Report Type: Report from Study
  Country: US (occurrence: US)
  Receive Date: 20150216
  Receipt Date: 20150219
  Transmission Date: 20150721
  Serious: No
  Sender: FDA-Public Use
  Company Number: US-ABBVIE-12P-163-0904192-00

PATIENT
  Age: 68 Year
  Sex: Female

DRUGS (13)
  1. HOMEOPATHIC REMEDY [Concomitant]
     Active Substance: HOMEOPATHICS
     Indication: SLEEP APNOEA SYNDROME
  2. ARSENICUM ALBUM [Concomitant]
     Indication: ANXIETY
  3. HUMIRA [Suspect]
     Active Substance: ADALIMUMAB
     Indication: CROHN^S DISEASE
     Dosage: SET OF 4 INJECTIONS
     Route: 065
     Dates: start: 201010
  4. CALCIUM LEVOMEFOLATE [Suspect]
     Active Substance: LEVOMEFOLATE CALCIUM
     Indication: THROMBOSIS PROPHYLAXIS
  5. ARMOUR THYROID [Concomitant]
     Active Substance: THYROID, PORCINE\THYROID, UNSPECIFIED
  6. VITAMINS NOS [Concomitant]
     Active Substance: VITAMINS
     Indication: PRODUCT USED FOR UNKNOWN INDICATION
  7. HUMIRA [Suspect]
     Active Substance: ADALIMUMAB
     Route: 065
     Dates: start: 20130519
  8. PENTASA [Concomitant]
     Active Substance: MESALAMINE
     Indication: CROHN^S DISEASE
  9. DEPLIN [Suspect]
     Active Substance: LEVOMEFOLATE CALCIUM
     Indication: DEPRESSION
  10. FISH OIL [Concomitant]
     Active Substance: FISH OIL
     Indication: PRODUCT USED FOR UNKNOWN INDICATION
  11. CALCIUM LEVOMEFOLATE [Suspect]
     Active Substance: LEVOMEFOLATE CALCIUM
     Indication: VITAMIN B12 DEFICIENCY
     Route: 065
     Dates: start: 201304, end: 201304
  12. ARMOUR THYROID [Concomitant]
     Active Substance: THYROID, PORCINE\THYROID, UNSPECIFIED
     Indication: HYPOTHYROIDISM
  13. DEPLIN [Suspect]
     Active Substance: LEVOMEFOLATE CALCIUM
     Indication: THROMBOSIS PROPHYLAXIS
     Route: 065

REACTIONS (26)
  - Drug ineffective [Recovering/Resolving]
  - Myalgia [Recovering/Resolving]
  - Injection site pruritus [Not Recovered/Not Resolved]
  - Feeling abnormal [Recovering/Resolving]
  - Nausea [Recovering/Resolving]
  - Injection site pain [Recovering/Resolving]
  - Injection site erythema [Not Recovered/Not Resolved]
  - Dyspnoea [Not Recovered/Not Resolved]
  - Fall [Recovering/Resolving]
  - Insomnia [Recovering/Resolving]
  - Stress [Not Recovered/Not Resolved]
  - Seasonal allergy [Not Recovered/Not Resolved]
  - Drug dose omission [Unknown]
  - Fatigue [Not Recovered/Not Resolved]
  - Injection site nodule [Not Recovered/Not Resolved]
  - Malaise [Recovering/Resolving]
  - Activities of daily living impaired [Recovered/Resolved]
  - Injection site urticaria [Recovered/Resolved]
  - Injection site haemorrhage [Unknown]
  - Injection site pain [Recovered/Resolved]
  - Confusional state [Recovered/Resolved]
  - Inappropriate schedule of drug administration [Recovered/Resolved]
  - Post-traumatic stress disorder [Not Recovered/Not Resolved]
  - Injection site reaction [Not Recovered/Not Resolved]
  - Anxiety [Not Recovered/Not Resolved]
  - Upper respiratory tract congestion [Not Recovered/Not Resolved]

NARRATIVE: CASE EVENT DATE: 201010
